FAERS Safety Report 15725965 (Version 1)
Quarter: 2018Q4

REPORT INFORMATION
  Report Type: Spontaneous
  Country: NP (occurrence: NP)
  Receive Date: 20181216
  Receipt Date: 20181216
  Transmission Date: 20190205
  Serious: Yes (Death)
  Sender: FDA-Public Use
  Company Number: PHHY2018NP043752

PATIENT
  Age: 57 Year
  Sex: Male

DRUGS (1)
  1. GLIVEC [Suspect]
     Active Substance: IMATINIB MESYLATE
     Indication: GASTROINTESTINAL STROMAL TUMOUR
     Dosage: 4 DF (100 MG), UNK
     Route: 065

REACTIONS (3)
  - Abdominal pain upper [Unknown]
  - Haemoglobin decreased [Unknown]
  - Death [Fatal]

NARRATIVE: CASE EVENT DATE: 201809
